FAERS Safety Report 10953899 (Version 1)
Quarter: 2015Q1

REPORT INFORMATION
  Report Type: Spontaneous
  Country: US (occurrence: None)
  Receive Date: 20150226
  Receipt Date: 20150226
  Transmission Date: 20150721
  Serious: Yes (Other)
  Sender: FDA-Public Use
  Company Number: TPA2010A05705

PATIENT
  Sex: Male

DRUGS (1)
  1. ULORIC [Suspect]
     Active Substance: FEBUXOSTAT
     Indication: GOUT
     Dates: start: 2009, end: 2009

REACTIONS (4)
  - Oedema mouth [None]
  - Swollen tongue [None]
  - Hypersensitivity [None]
  - Pharyngeal oedema [None]
